FAERS Safety Report 6651742-9 (Version None)
Quarter: 2010Q1

REPORT INFORMATION
  Report Type: 
  Country: None (occurrence: None)
  Receive Date: 20100325
  Receipt Date: 20100315
  Transmission Date: 20100710
  Serious: Yes (Hospitalization, Other)
  Sender: FDA-Public Use
  Company Number: BE-ABBOTT-09P-013-0597320-00

PATIENT
  Sex: Male

DRUGS (2)
  1. LUCRIN DEPOT 11.25 MG [Suspect]
     Indication: PROSTATE CANCER
     Route: 058
     Dates: start: 20090909
  2. UNSPECIFIED PAINKILLER [Suspect]
     Indication: DRUG USE FOR UNKNOWN INDICATION

REACTIONS (4)
  - MEDICAL DEVICE COMPLICATION [None]
  - PAIN [None]
  - RADIATION SKIN INJURY [None]
  - URINARY INCONTINENCE [None]
